FAERS Safety Report 8608661-8 (Version None)
Quarter: 2012Q3

REPORT INFORMATION
  Report Type: 
  Country: None (occurrence: None)
  Receive Date: 20120821
  Receipt Date: 20120815
  Transmission Date: 20120928
  Serious: Yes (Other)
  Sender: FDA-Public Use
  Company Number: US-PFIZER INC-2012172094

PATIENT
  Sex: Male

DRUGS (2)
  1. LYRICA [Suspect]
     Dosage: UNK, 1X/DAY
  2. LYRICA [Suspect]
     Dosage: UNK, 3X/DAY

REACTIONS (6)
  - DRUG WITHDRAWAL SYNDROME [None]
  - MUSCULOSKELETAL DISCOMFORT [None]
  - FIBROMYALGIA [None]
  - HEADACHE [None]
  - MOVEMENT DISORDER [None]
  - ACCIDENT AT WORK [None]
